FAERS Safety Report 23802709 (Version 1)
Quarter: 2024Q2

REPORT INFORMATION
  Report Type: Spontaneous
  Country: US (occurrence: US)
  Receive Date: 20240501
  Receipt Date: 20240501
  Transmission Date: 20240716
  Serious: No
  Sender: FDA-Public Use
  Company Number: US-ARIS GLOBAL-AXS202311-001483

PATIENT
  Age: 51 Year
  Sex: Female
  Weight: 125.83 kg

DRUGS (18)
  1. SUNOSI [Suspect]
     Active Substance: SOLRIAMFETOL
     Indication: Product used for unknown indication
  2. ACIPHEX [Concomitant]
     Active Substance: RABEPRAZOLE SODIUM
     Indication: Product used for unknown indication
  3. METOPROLOL TARTRATE [Concomitant]
     Active Substance: METOPROLOL TARTRATE
     Indication: Product used for unknown indication
  4. SYNTHROID [Concomitant]
     Active Substance: LEVOTHYROXINE SODIUM
     Indication: Product used for unknown indication
     Dosage: 2500 MCG PER 14 DAYS
  5. MAXZIDE [Concomitant]
     Active Substance: HYDROCHLOROTHIAZIDE\TRIAMTERENE
     Indication: Product used for unknown indication
     Dosage: 75:50 MILLIGRAM
  6. TRAMADOL HCL [Concomitant]
     Active Substance: TRAMADOL HYDROCHLORIDE
     Indication: Analgesic therapy
  7. LYRICA [Concomitant]
     Active Substance: PREGABALIN
     Indication: Antidepressant therapy
  8. LYRICA [Concomitant]
     Active Substance: PREGABALIN
     Indication: Antipsychotic therapy
  9. LYRICA [Concomitant]
     Active Substance: PREGABALIN
     Indication: Epilepsy
  10. GABAPENTIN [Concomitant]
     Active Substance: GABAPENTIN
     Indication: Antidepressant therapy
  11. GABAPENTIN [Concomitant]
     Active Substance: GABAPENTIN
     Indication: Antipsychotic therapy
  12. GABAPENTIN [Concomitant]
     Active Substance: GABAPENTIN
     Indication: Epilepsy
  13. NASONEX [Concomitant]
     Active Substance: MOMETASONE FUROATE
     Indication: Product used for unknown indication
     Dates: start: 20171129
  14. TRIAMCINOLONE [Concomitant]
     Active Substance: TRIAMCINOLONE
     Indication: Product used for unknown indication
     Dosage: APPLY TO AFFECTED AREA THREE TIMES DAILY
     Dates: start: 20190607
  15. TRULICITY [Concomitant]
     Active Substance: DULAGLUTIDE
     Indication: Product used for unknown indication
     Dosage: 1.5 MILLIGRAM /0.5 MILLILITRE
     Dates: start: 20200802, end: 20201215
  16. METHYLPHENIDATE [Concomitant]
     Active Substance: METHYLPHENIDATE
     Indication: Product used for unknown indication
  17. OZEMPIC [Concomitant]
     Active Substance: SEMAGLUTIDE
     Indication: Product used for unknown indication
     Dosage: 1 MG/DOSE (2 MG/1.5 ML) PEN INJECTOR
  18. CEFDINIR [Concomitant]
     Active Substance: CEFDINIR
     Indication: Product used for unknown indication

REACTIONS (1)
  - Drug effect less than expected [Unknown]
